FAERS Safety Report 18417975 (Version 1)
Quarter: 2020Q4

REPORT INFORMATION
  Report Type: Spontaneous
  Country: US (occurrence: US)
  Receive Date: 20201023
  Receipt Date: 20201023
  Transmission Date: 20210114
  Serious: No
  Sender: FDA-Public Use
  Company Number: US-GLAXOSMITHKLINE-US2020205390

PATIENT
  Age: 49 Year
  Sex: Female

DRUGS (1)
  1. EXCEDRIN MIGRAINE [Suspect]
     Active Substance: ACETAMINOPHEN\ASPIRIN\CAFFEINE
     Indication: MIGRAINE
     Dosage: UNK
     Dates: start: 20201014, end: 20201014

REACTIONS (5)
  - Therapeutic response unexpected [Unknown]
  - Overdose [Unknown]
  - Throat tightness [Unknown]
  - Dizziness [Unknown]
  - Stress [Unknown]

NARRATIVE: CASE EVENT DATE: 20201014
